FAERS Safety Report 9181122 (Version 3)
Quarter: 2013Q2

REPORT INFORMATION
  Report Type: Spontaneous
  Country: US (occurrence: US)
  Receive Date: 20130322
  Receipt Date: 20130612
  Transmission Date: 20140414
  Serious: Yes (Hospitalization)
  Sender: FDA-Public Use
  Company Number: US-BAYER-2013-033321

PATIENT
  Age: 37 Year
  Sex: Female
  Weight: 75 kg

DRUGS (14)
  1. YASMIN [Suspect]
     Indication: MENORRHAGIA
  2. YASMIN [Suspect]
     Indication: PREMENSTRUAL SYNDROME
  3. IMITREX [Concomitant]
     Dosage: PRN
  4. LEVOTHYROXINE [Concomitant]
     Dosage: 100 MCG/24HR, DAILY
  5. ZOLOFT [Concomitant]
  6. CHANTIX [Concomitant]
  7. IBUPROFEN [Concomitant]
  8. AZITHROMYCIN [Concomitant]
  9. PERCOCET [Concomitant]
  10. VICODIN [Concomitant]
  11. LEVOXYL [Concomitant]
  12. CHERATUSSIN [AMMONIUM CHLORIDE,DEXTROMETHORPHAN HYDROBROMIDE,SODIU [Concomitant]
  13. ANTIBIOTICS [Concomitant]
     Indication: PNEUMONIA
  14. HYDROCHLOROTHIAZIDE [Concomitant]
     Indication: HYPERTENSION

REACTIONS (1)
  - Pulmonary embolism [Recovered/Resolved]
